FAERS Safety Report 6021821-8 (Version None)
Quarter: 2008Q4

REPORT INFORMATION
  Report Type: 
  Country: None (occurrence: None)
  Receive Date: 20081222
  Receipt Date: 20081015
  Transmission Date: 20090506
  Serious: No
  Sender: FDA-Public Use
  Company Number: ALL1-2008-03013

PATIENT
  Age: 50 Year
  Sex: Female
  Weight: 62.6 kg

DRUGS (5)
  1. VYVANSE [Suspect]
     Indication: ATTENTION DEFICIT/HYPERACTIVITY DISORDER
     Dosage: 1X/DAY; QD, ORAL
     Route: 048
     Dates: start: 20080501, end: 20080601
  2. VYVANSE [Suspect]
     Indication: ATTENTION DEFICIT/HYPERACTIVITY DISORDER
     Dosage: 1X/DAY; QD, ORAL
     Route: 048
     Dates: start: 20080708, end: 20080715
  3. PROZAC /00724401/ (FLUOXETINE) [Concomitant]
  4. PRILOSEC /00661201/ (OMEPRAZOLE) [Concomitant]
  5. DIOVAN [Concomitant]

REACTIONS (3)
  - ABDOMINAL PAIN UPPER [None]
  - DIZZINESS [None]
  - HEADACHE [None]
